FAERS Safety Report 5396920-4 (Version None)
Quarter: 2007Q3

REPORT INFORMATION
  Report Type: 
  Country: None (occurrence: None)
  Receive Date: 20070725
  Receipt Date: 20070717
  Transmission Date: 20080115
  Serious: Yes (Hospitalization, Other)
  Sender: FDA-Public Use
  Company Number: US-ASTRAZENECA-2007UW16966

PATIENT
  Age: 69 Year
  Sex: Female
  Weight: 74.4 kg

DRUGS (15)
  1. NEXIUM [Suspect]
     Route: 048
  2. CHEMOTHERAPY [Suspect]
     Indication: BREAST CANCER
  3. BENECAR [Concomitant]
  4. COREG [Concomitant]
  5. KLOR-CON [Concomitant]
  6. FOLIC ACID [Concomitant]
  7. ZOLOFT [Concomitant]
  8. PREDNISONE [Concomitant]
  9. CYCLOBENZAPRINE HCL [Concomitant]
  10. DARVOCET [Concomitant]
  11. RELAFEN [Concomitant]
  12. TIGAN [Concomitant]
  13. OSCAL [Concomitant]
  14. ASCORBIC ACID [Concomitant]
  15. BONIVA [Concomitant]

REACTIONS (7)
  - BREAST CANCER [None]
  - CATARACT [None]
  - INFECTION [None]
  - KNEE ARTHROPLASTY [None]
  - NEUTROPENIA [None]
  - URINARY INCONTINENCE [None]
  - URINARY TRACT INFECTION [None]
